FAERS Safety Report 22669363 (Version 3)
Quarter: 2024Q1

REPORT INFORMATION
  Report Type: Spontaneous
  Country: JP (occurrence: JP)
  Receive Date: 20230704
  Receipt Date: 20240103
  Transmission Date: 20240410
  Serious: Yes (Hospitalization, Other)
  Sender: FDA-Public Use
  Company Number: JP-MSD-2306JPN003945J

PATIENT
  Age: 60 Year
  Sex: Male

DRUGS (2)
  1. KEYTRUDA [Suspect]
     Active Substance: PEMBROLIZUMAB
     Indication: Renal cancer stage IV
     Dosage: UNK
     Route: 041
     Dates: start: 202202
  2. INLYTA [Suspect]
     Active Substance: AXITINIB
     Indication: Renal cancer stage IV
     Dosage: UNK
     Route: 048
     Dates: start: 202202

REACTIONS (6)
  - Hypothalamo-pituitary disorder [Recovered/Resolved]
  - Hypoglycaemia [Recovered/Resolved]
  - Secondary adrenocortical insufficiency [Recovered/Resolved]
  - Enterocolitis [Unknown]
  - Device related infection [Recovered/Resolved]
  - Ileus [Unknown]

NARRATIVE: CASE EVENT DATE: 20220406
